FAERS Safety Report 18893166 (Version 1)
Quarter: 2021Q1

REPORT INFORMATION
  Report Type: Spontaneous
  Country: IT (occurrence: IT)
  Receive Date: 20210215
  Receipt Date: 20210215
  Transmission Date: 20210420
  Serious: Yes (Hospitalization, Other)
  Sender: FDA-Public Use
  Company Number: IT-TAKEDA-2021TUS008476

PATIENT
  Age: 68 Year
  Sex: Female

DRUGS (1)
  1. ICLUSIG [Suspect]
     Active Substance: PONATINIB
     Indication: CHRONIC MYELOID LEUKAEMIA
     Dosage: 15 MILLIGRAM
     Route: 065

REACTIONS (3)
  - Myocardial necrosis marker increased [Unknown]
  - Acute coronary syndrome [Unknown]
  - Dyspnoea [Unknown]
